FAERS Safety Report 22595315 (Version 1)
Quarter: 2023Q2

REPORT INFORMATION
  Report Type: Spontaneous
  Country: ES (occurrence: ES)
  Receive Date: 20230613
  Receipt Date: 20230613
  Transmission Date: 20230722
  Serious: Yes (Other)
  Sender: FDA-Public Use
  Company Number: ES-002147023-NVSC2023ES132372

PATIENT
  Age: 32 Year
  Sex: Female

DRUGS (7)
  1. RITUXIMAB [Suspect]
     Active Substance: RITUXIMAB
     Indication: Lupus nephritis
     Dosage: 1 G, BIW (2 DOSES OF 1 G SEPARATED BY 2 WEEKS)
     Route: 065
  2. MYCOPHENOLATE MOFETIL [Suspect]
     Active Substance: MYCOPHENOLATE MOFETIL
     Indication: Lupus nephritis
     Dosage: UNK
     Route: 065
  3. TACROLIMUS [Suspect]
     Active Substance: TACROLIMUS
     Indication: Lupus nephritis
     Dosage: UNK
     Route: 065
  4. HYDROXYCHLOROQUINE [Suspect]
     Active Substance: HYDROXYCHLOROQUINE
     Indication: Lupus nephritis
     Dosage: UNK
     Route: 065
  5. METHYLPREDNISOLONE [Suspect]
     Active Substance: METHYLPREDNISOLONE
     Indication: Lupus nephritis
     Dosage: 3 BOLUSES
     Route: 065
  6. PREDNISONE [Suspect]
     Active Substance: PREDNISONE
     Indication: Lupus nephritis
     Dosage: UNK
     Route: 065
  7. CYCLOPHOSPHAMIDE [Suspect]
     Active Substance: CYCLOPHOSPHAMIDE
     Indication: Lupus nephritis
     Dosage: UNK (EURO-LUPUS REGIMEN)
     Route: 065

REACTIONS (5)
  - Lupus nephritis [Unknown]
  - Disease progression [Unknown]
  - Drug ineffective [Unknown]
  - Therapy partial responder [Unknown]
  - Product use in unapproved indication [Unknown]
